FAERS Safety Report 14534965 (Version 3)
Quarter: 2018Q1

REPORT INFORMATION
  Report Type: Spontaneous
  Country: IT (occurrence: IT)
  Receive Date: 20180215
  Receipt Date: 20180227
  Transmission Date: 20180509
  Serious: Yes (Hospitalization)
  Sender: FDA-Public Use
  Company Number: IT-PFIZER INC-2017098742

PATIENT
  Age: 73 Year
  Sex: Male

DRUGS (3)
  1. XANAX [Suspect]
     Active Substance: ALPRAZOLAM
     Dosage: 17 DF, UNK
     Route: 048
     Dates: start: 20161101, end: 20161101
  2. ENTACT [Concomitant]
     Active Substance: ESCITALOPRAM OXALATE
     Route: 048
  3. EUTIROX [Concomitant]
     Active Substance: LEVOTHYROXINE SODIUM
     Route: 048

REACTIONS (5)
  - Hyperventilation [Unknown]
  - Intentional overdose [Unknown]
  - Intentional self-injury [Unknown]
  - Agitation [Unknown]
  - Drug abuse [Unknown]

NARRATIVE: CASE EVENT DATE: 20161101
